FAERS Safety Report 9452983 (Version 1)
Quarter: 2013Q3

REPORT INFORMATION
  Report Type: Spontaneous
  Country: US (occurrence: US)
  Receive Date: 20130812
  Receipt Date: 20130812
  Transmission Date: 20140515
  Serious: Yes (Other)
  Sender: FDA-Public Use
  Company Number: US-BAYER-2013-094231

PATIENT
  Age: 27 Year
  Sex: Female

DRUGS (12)
  1. CIPROFLOXACIN [Suspect]
     Indication: INFECTION PROPHYLAXIS
     Dosage: 500 MG, ENTERALLY DAILY FOR 12 MONTHS
  2. DIGOXIN [Interacting]
     Dosage: 250 ?G/D
  3. DIGOXIN [Interacting]
     Dosage: 125 ?G/D, UNK
  4. ASPIRIN [Concomitant]
     Dosage: 81 MG, DAILY
     Route: 048
  5. LOSARTAN [Concomitant]
     Dosage: 25 MG, DAILY
     Route: 048
  6. NAPROXEN [Concomitant]
     Dosage: 500 MG, BID
     Route: 048
  7. TOPIRAMATE [Concomitant]
     Dosage: 50 MG, DAILY
     Route: 048
  8. LORATADINE [Concomitant]
     Dosage: 10 MG, DAILY
     Route: 048
  9. METOPROLOL [Concomitant]
     Dosage: 37.5 MG, DAILY
     Route: 048
  10. TRAZODONE [Concomitant]
     Dosage: 50 MG, HS
     Route: 048
  11. LANSOPRAZOLE [Concomitant]
     Dosage: 30 MG, DAILY
     Route: 048
  12. ORTHO TRI-CYCLEN [Concomitant]
     Route: 048

REACTIONS (4)
  - Toxicity to various agents [Recovered/Resolved]
  - Drug interaction [Recovered/Resolved]
  - Nausea [Recovered/Resolved]
  - Decreased appetite [Recovered/Resolved]
